FAERS Safety Report 5900717-3 (Version None)
Quarter: 2008Q3

REPORT INFORMATION
  Report Type: 
  Country: None (occurrence: None)
  Receive Date: 20080928
  Receipt Date: 20080915
  Transmission Date: 20090109
  Serious: Yes (Other)
  Sender: FDA-Public Use
  Company Number: ES-JNJFOC-20070902282

PATIENT
  Age: 70 Year
  Sex: Female

DRUGS (7)
  1. INFLIXIMAB [Suspect]
     Indication: RHEUMATOID ARTHRITIS
     Dosage: 13 INFUSIONS IN TOTAL
     Route: 042
  2. METHOTREXATE [Concomitant]
     Route: 048
  3. ZAMENE [Concomitant]
     Route: 048
  4. ZANTAC [Concomitant]
     Route: 048
  5. LEDERFOLIN [Concomitant]
     Route: 048
  6. ACTONEL [Concomitant]
     Route: 048
  7. MASTICAL [Concomitant]
     Route: 048

REACTIONS (3)
  - LUNG NEOPLASM MALIGNANT [None]
  - PNEUMONIA [None]
  - SQUAMOUS CELL CARCINOMA OF THE CERVIX [None]
